FAERS Safety Report 23486869 (Version 1)
Quarter: 2024Q1

REPORT INFORMATION
  Report Type: Spontaneous
  Country: IR (occurrence: IR)
  Receive Date: 20240206
  Receipt Date: 20240206
  Transmission Date: 20240410
  Serious: Yes (Hospitalization, Other)
  Sender: FDA-Public Use
  Company Number: IR-MLMSERVICE-20240126-4800922-1

PATIENT
  Age: 15 Year
  Sex: Male

DRUGS (1)
  1. MEROPENEM [Suspect]
     Active Substance: MEROPENEM
     Indication: Infection prophylaxis
     Dosage: 1 G, 3X/DAY (1GR/Q8H)
     Route: 042

REACTIONS (3)
  - Jaundice [Unknown]
  - Biliary obstruction [Unknown]
  - Thrombocytopenia [Unknown]
